FAERS Safety Report 9695415 (Version 3)
Quarter: 2014Q3

REPORT INFORMATION
  Report Type: Report from Study
  Country: US (occurrence: US)
  Receive Date: 20131119
  Receipt Date: 20140812
  Transmission Date: 20150326
  Serious: Yes (Death, Other)
  Sender: FDA-Public Use
  Company Number: US-CELGENEUS-163-C4047-09100951

PATIENT

DRUGS (5)
  1. CC-4047 [Suspect]
     Active Substance: POMALIDOMIDE
     Dosage: 2.5 MILLIGRAM
     Route: 048
  2. CC-4047 [Suspect]
     Active Substance: POMALIDOMIDE
     Indication: MYELOFIBROSIS
     Dosage: .5 MILLIGRAM
     Route: 048
  3. CC-4047 [Suspect]
     Active Substance: POMALIDOMIDE
     Dosage: 0.5-3.5 MG
     Route: 048
  4. PREDNISONE. [Concomitant]
     Active Substance: PREDNISONE
     Indication: PRODUCT USED FOR UNKNOWN INDICATION
     Route: 048
  5. CC-4047 [Suspect]
     Active Substance: POMALIDOMIDE
     Dosage: 0.5-3.5 MG
     Route: 048

REACTIONS (14)
  - Headache [Unknown]
  - Blood alkaline phosphatase increased [Unknown]
  - Neuropathy peripheral [Unknown]
  - Thrombocytopenia [Unknown]
  - Neutropenia [Unknown]
  - Rash [Unknown]
  - No therapeutic response [Unknown]
  - Death [Fatal]
  - Fatigue [Unknown]
  - Lymphadenopathy [Unknown]
  - Dyspnoea [Unknown]
  - Leukaemia [Fatal]
  - White blood cell count increased [Unknown]
  - Myelofibrosis [Unknown]
